FAERS Safety Report 6288219-9 (Version None)
Quarter: 2009Q3

REPORT INFORMATION
  Report Type: 
  Country: None (occurrence: None)
  Receive Date: 20090727
  Receipt Date: 20090727
  Transmission Date: 20100115
  Serious: Yes (Life-Threatening)
  Sender: FDA-Public Use
  Company Number: None

PATIENT
  Age: 32 Year
  Sex: Female
  Weight: 58.0604 kg

DRUGS (3)
  1. NUVARING ETONOGESTREL 0.120MG ORGANON ETHINYL ESTRADIOL 0.015 MG [Suspect]
     Indication: MENSTRUATION IRREGULAR
     Dosage: 0.120MG QD VAG
     Route: 067
     Dates: start: 20090502, end: 20090628
  2. NUVARING ETONOGESTREL 0.120MG ORGANON ETHINYL ESTRADIOL 0.015 MG [Suspect]
     Indication: OVARIAN CYST
     Dosage: 0.120MG QD VAG
     Route: 067
     Dates: start: 20090502, end: 20090628
  3. . [Concomitant]

REACTIONS (8)
  - ANAPHYLACTIC REACTION [None]
  - DEPRESSED LEVEL OF CONSCIOUSNESS [None]
  - DIZZINESS [None]
  - LETHARGY [None]
  - PALLOR [None]
  - PULSE PRESSURE INCREASED [None]
  - VULVOVAGINAL BURNING SENSATION [None]
  - VULVOVAGINAL PRURITUS [None]
